FAERS Safety Report 6369019-8 (Version None)
Quarter: 2009Q3

REPORT INFORMATION
  Report Type: 
  Country: None (occurrence: None)
  Receive Date: 20090918
  Receipt Date: 20090918
  Transmission Date: 20100115
  Serious: Yes (Other)
  Sender: FDA-Public Use
  Company Number: None

PATIENT
  Sex: Female
  Weight: 64.8644 kg

DRUGS (2)
  1. REGLAN [Suspect]
     Indication: REFLUX GASTRITIS
     Dosage: 1/2 TAB QHS PO
     Route: 048
     Dates: start: 20080814, end: 20080821
  2. REGLAN [Suspect]
     Indication: REFLUX GASTRITIS
     Dosage: 1/2 TAB QHS PO
     Route: 048
     Dates: start: 20090806, end: 20090816

REACTIONS (2)
  - NIGHTMARE [None]
  - POOR QUALITY SLEEP [None]
